FAERS Safety Report 8199269-X (Version None)
Quarter: 2012Q1

REPORT INFORMATION
  Report Type: 
  Country: None (occurrence: None)
  Receive Date: 20120309
  Receipt Date: 20120301
  Transmission Date: 20120608
  Serious: Yes (Death)
  Sender: FDA-Public Use
  Company Number: IT-GENZYME-FABR-1002383

PATIENT

DRUGS (1)
  1. FABRAZYME [Suspect]
     Dosage: UNK
     Route: 042
     Dates: start: 20011116, end: 20111104

REACTIONS (1)
  - CARDIAC FAILURE [None]
